FAERS Safety Report 6421705-7 (Version None)
Quarter: 2009Q4

REPORT INFORMATION
  Report Type: 
  Country: None (occurrence: None)
  Receive Date: 20091030
  Receipt Date: 20091021
  Transmission Date: 20100525
  Serious: Yes (Other)
  Sender: FDA-Public Use
  Company Number: US-JNJFOC-20090906760

PATIENT
  Sex: Female

DRUGS (20)
  1. REMICADE [Suspect]
     Route: 042
     Dates: start: 20060301, end: 20090819
  2. REMICADE [Suspect]
     Route: 042
     Dates: start: 20060301, end: 20090819
  3. REMICADE [Suspect]
     Indication: RHEUMATOID ARTHRITIS
     Route: 042
     Dates: start: 20060301, end: 20090819
  4. TOPROL-XL [Concomitant]
     Indication: ARRHYTHMIA
  5. METHOTREXATE SODIUM [Concomitant]
     Indication: RHEUMATOID ARTHRITIS
  6. PREDNISONE [Concomitant]
     Indication: RHEUMATOID ARTHRITIS
  7. ASPIRIN [Concomitant]
     Indication: HYPERTENSION
  8. VERAPAMIL [Concomitant]
  9. PRAVACHOL [Concomitant]
     Indication: HYPERTENSION
  10. PRAVACHOL [Concomitant]
     Indication: BLOOD CHOLESTEROL
  11. FOLIC ACID [Concomitant]
     Indication: RHEUMATOID ARTHRITIS
  12. POTASSIUM CHLORIDE [Concomitant]
     Indication: BLOOD POTASSIUM DECREASED
  13. VICODIN [Concomitant]
     Indication: SPINAL COLUMN STENOSIS
  14. VICODIN [Concomitant]
     Indication: PAIN
  15. MAXZIDE [Concomitant]
     Indication: HYPERTENSION
  16. CALCIUM [Concomitant]
     Indication: BLOOD CALCIUM DECREASED
  17. VITAMIN D [Concomitant]
  18. VITAMIN D [Concomitant]
     Indication: VITAMIN D DEFICIENCY
  19. EPIPEN [Concomitant]
  20. ADVAIR DISKUS 100/50 [Concomitant]

REACTIONS (2)
  - CONTUSION [None]
  - HAEMORRHAGE [None]
